FAERS Safety Report 16259450 (Version 3)
Quarter: 2019Q4

REPORT INFORMATION
  Report Type: Spontaneous
  Country: GB (occurrence: GB)
  Receive Date: 20190501
  Receipt Date: 20191107
  Transmission Date: 20200122
  Serious: Yes (Hospitalization)
  Sender: FDA-Public Use
  Company Number: GB-GW PHARMA-201904GBGW1202

PATIENT

DRUGS (1)
  1. EPIDIOLEX [Suspect]
     Active Substance: CANNABIDIOL
     Indication: PARTIAL SEIZURES
     Route: 065

REACTIONS (6)
  - Dysstasia [Unknown]
  - Dysphagia [Unknown]
  - Gait inability [Unknown]
  - General physical health deterioration [Unknown]
  - Weight decreased [Unknown]
  - Aphasia [Unknown]

NARRATIVE: CASE EVENT DATE: 2019
